FAERS Safety Report 26100240 (Version 1)
Quarter: 2025Q4

REPORT INFORMATION
  Report Type: Spontaneous
  Country: CN (occurrence: CN)
  Receive Date: 20251128
  Receipt Date: 20251128
  Transmission Date: 20260117
  Serious: Yes (Other)
  Sender: BAXTER
  Company Number: None

PATIENT
  Age: 31 Year
  Sex: Male
  Weight: 82 kg

DRUGS (6)
  1. CYCLOPHOSPHAMIDE [Suspect]
     Active Substance: CYCLOPHOSPHAMIDE
     Indication: Acute lymphocytic leukaemia
     Dosage: 2.8 G, EVERY 2 WK (INTRAPUMP INJECTION)
     Route: 065
     Dates: start: 20250916, end: 20250930
  2. SODIUM CHLORIDE [Suspect]
     Active Substance: SODIUM CHLORIDE
     Dosage: 800 ML, EVERY 2 WK (INTRAPUMP INJECTION WITH CYCLOPHOSPHAMIDE)
     Route: 065
     Dates: start: 20250916, end: 20250930
  3. SODIUM CHLORIDE [Suspect]
     Active Substance: SODIUM CHLORIDE
     Dosage: 50 ML, 1X A WEEK (INTRAPUMP INJECTION WITH VINCRISTINE SULFATE)
     Route: 065
     Dates: start: 20250916, end: 20250930
  4. SODIUM CHLORIDE [Suspect]
     Active Substance: SODIUM CHLORIDE
     Dosage: 100 ML, 1X A WEEK (INTRAPUMP INJECTION WITH AI NUO NING)
     Route: 065
     Dates: start: 20250916, end: 20250930
  5. IDARUBICIN HYDROCHLORIDE [Suspect]
     Active Substance: IDARUBICIN HYDROCHLORIDE
     Indication: Acute lymphocytic leukaemia
     Dosage: 15 MG, 1X A WEEK (INTRAPUMP INJECTION)
     Route: 065
     Dates: start: 20250916, end: 20250930
  6. VINCRISTINE SULFATE [Suspect]
     Active Substance: VINCRISTINE SULFATE
     Indication: Acute lymphocytic leukaemia
     Dosage: 2 MG, 1X A WEEK (INTRAPUMP INJECTION)
     Route: 065
     Dates: start: 20250916, end: 20250930

REACTIONS (2)
  - Myelosuppression [Recovering/Resolving]
  - Cytopenia [Recovering/Resolving]

NARRATIVE: CASE EVENT DATE: 20251003
